FAERS Safety Report 10784385 (Version 1)
Quarter: 2015Q1

REPORT INFORMATION
  Report Type: Spontaneous
  Country: US (occurrence: None)
  Receive Date: 20150209
  Receipt Date: 20150209
  Transmission Date: 20150721
  Serious: No
  Sender: FDA-Public Use
  Company Number: None

PATIENT
  Sex: Female

DRUGS (1)
  1. CHILDRENS QPAP [Suspect]
     Active Substance: ACETAMINOPHEN

REACTIONS (4)
  - Medication error [None]
  - Dyspepsia [None]
  - Drug dispensing error [None]
  - Crying [None]

NARRATIVE: CASE EVENT DATE: 2014
